FAERS Safety Report 5268304-0 (Version None)
Quarter: 2007Q1

REPORT INFORMATION
  Report Type: 
  Country: None (occurrence: None)
  Receive Date: 20070313
  Receipt Date: 20070226
  Transmission Date: 20070707
  Serious: Yes (Other)
  Sender: FDA-Public Use
  Company Number: 07-000437

PATIENT
  Age: 40 Year
  Sex: Female

DRUGS (1)
  1. DURICEF [Suspect]
     Indication: NASOPHARYNGITIS
     Dosage: 500MG TWO CAPS, BID, ORAL
     Route: 048
     Dates: start: 20070115, end: 20070122

REACTIONS (4)
  - EPISTAXIS [None]
  - PRURITUS GENERALISED [None]
  - PURPURA [None]
  - TYPE IV HYPERSENSITIVITY REACTION [None]
